FAERS Safety Report 26126955 (Version 1)
Quarter: 2025Q4

REPORT INFORMATION
  Report Type: Spontaneous
  Country: EU (occurrence: EU)
  Receive Date: 20251205
  Receipt Date: 20251205
  Transmission Date: 20260117
  Serious: Yes (Other)
  Sender: HILL DERMACEUTICALS, INC.
  Company Number: EU-Hill Dermaceuticals, Inc.-2189949

PATIENT
  Age: 56 Year
  Sex: Male

DRUGS (5)
  1. TOLAK [Suspect]
     Active Substance: FLUOROURACIL
  2. LEVOLEUCOVORIN CALCIUM [Suspect]
     Active Substance: LEVOLEUCOVORIN CALCIUM
  3. ZOLBETUXIMAB [Suspect]
     Active Substance: ZOLBETUXIMAB
  4. CAPECITABINE [Suspect]
     Active Substance: CAPECITABINE
  5. OXALIPLATIN [Suspect]
     Active Substance: OXALIPLATIN

REACTIONS (2)
  - Intestinal metastasis [Unknown]
  - Metastases to perineum [Unknown]
